FAERS Safety Report 8963759 (Version 1)
Quarter: 2012Q4

REPORT INFORMATION
  Report Type: 
  Country: US (occurrence: US)
  Receive Date: 20121214
  Receipt Date: 20121214
  Transmission Date: 20130627
  Serious: Yes (Other)
  Sender: FDA-Public Use
  Company Number: US-AMGEN-USASP2012079283

PATIENT
  Age: 61 Year
  Sex: Female

DRUGS (2)
  1. ENBREL [Suspect]
     Indication: RHEUMATOID ARTHRITIS
     Dosage: 50 mg, qwk
  2. HUMIRA [Concomitant]
     Dosage: UNK

REACTIONS (5)
  - Pulmonary mass [Unknown]
  - Nodule [Not Recovered/Not Resolved]
  - Arthropod bite [Recovered/Resolved]
  - Pneumonia [Recovered/Resolved]
  - Wound infection [Recovered/Resolved]
